FAERS Safety Report 10028673 (Version 2)
Quarter: 2014Q2

REPORT INFORMATION
  Report Type: Spontaneous
  Country: JP (occurrence: JP)
  Receive Date: 20140321
  Receipt Date: 20140425
  Transmission Date: 20141212
  Serious: Yes (Other)
  Sender: FDA-Public Use
  Company Number: JP-GLAXOSMITHKLINE-B0978445A

PATIENT
  Age: 1 Year
  Sex: Female

DRUGS (2)
  1. ALKERAN [Suspect]
     Indication: GLIOBLASTOMA
     Dosage: 70MGM2 PER DAY
     Route: 051
  2. FLUDARABINE PHOSPHATE [Concomitant]
     Indication: CORD BLOOD TRANSPLANT THERAPY
     Dosage: 30MGM2 PER DAY
     Route: 065

REACTIONS (1)
  - Pulmonary hypertension [Unknown]
